FAERS Safety Report 13612188 (Version 2)
Quarter: 2017Q2

REPORT INFORMATION
  Report Type: Spontaneous
  Country: US (occurrence: US)
  Receive Date: 20170605
  Receipt Date: 20170626
  Transmission Date: 20170830
  Serious: Yes (Hospitalization, Other)
  Sender: FDA-Public Use
  Company Number: US-PFIZER INC-2017242782

PATIENT
  Age: 12 Year
  Sex: Male

DRUGS (3)
  1. CYTARABINE. [Suspect]
     Active Substance: CYTARABINE
     Indication: ACUTE MYELOID LEUKAEMIA
     Dosage: 2660 MG, 1X/DAY (2660 MG IV X 4 HRS Q24 HR X 5 D)
     Route: 042
     Dates: start: 20170222, end: 20170226
  2. G-CSF [Suspect]
     Active Substance: GRANULOCYTE COLONY-STIMULATING FACTOR NOS
     Indication: ACUTE MYELOID LEUKAEMIA
     Dosage: UNK
     Dates: start: 20170222
  3. FLUDARABINE PHOSPHATE. [Suspect]
     Active Substance: FLUDARABINE PHOSPHATE
     Indication: ACUTE MYELOID LEUKAEMIA
     Dosage: 40 MG, 1X/DAY (40 MG IV X 30 MIN Q24 HR X 5 D)
     Route: 042
     Dates: start: 20170222, end: 20170226

REACTIONS (4)
  - Drug effect delayed [Unknown]
  - Perirectal abscess [Recovering/Resolving]
  - Bacteraemia [Unknown]
  - Sepsis [Unknown]

NARRATIVE: CASE EVENT DATE: 20170309
